FAERS Safety Report 4962865-4 (Version None)
Quarter: 2006Q2

REPORT INFORMATION
  Report Type: 
  Country: None (occurrence: None)
  Receive Date: 20060403
  Receipt Date: 20060403
  Transmission Date: 20061013
  Serious: No
  Sender: FDA-Public Use
  Company Number: None

PATIENT
  Sex: Male
  Weight: 73.6188 kg

DRUGS (12)
  1. BUPROPION HCL [Suspect]
     Indication: EX-SMOKER
     Dosage: 75 MG BID PO
     Route: 048
     Dates: start: 20050428, end: 20050428
  2. ALBUTEROL 90/ IPRATROP 18 MCG [Concomitant]
  3. DILTIAZEM - INWOOD- [Concomitant]
  4. DOXYCYCLINE HYCLATE [Concomitant]
  5. FLUNISOLIDE [Concomitant]
  6. FORMOTEROL FUMARATE [Concomitant]
  7. FUROSEMIDE [Concomitant]
  8. IPRATROPIUM BROMIDE [Concomitant]
  9. LISINOPRIL [Concomitant]
  10. LOVASTATIN [Concomitant]
  11. MULTIVITS W/ MINERALS [Concomitant]
  12. NICOTINE GUM [Concomitant]

REACTIONS (1)
  - DYSPNOEA [None]
